FAERS Safety Report 25800861 (Version 1)
Quarter: 2025Q3

REPORT INFORMATION
  Report Type: Spontaneous
  Country: US (occurrence: US)
  Receive Date: 20250915
  Receipt Date: 20250915
  Transmission Date: 20251021
  Serious: Yes (Other)
  Sender: DOMPE FARMACEUTICI
  Company Number: US-FARMAPROD-202508-2803

PATIENT
  Age: 64 Year
  Sex: Female
  Weight: 73.03 kg

DRUGS (22)
  1. OXERVATE [Suspect]
     Active Substance: CENEGERMIN-BKBJ
     Indication: Eye symptom
     Route: 047
     Dates: start: 20250113
  2. CORTICOTROPIN [Suspect]
     Active Substance: CORTICOTROPIN
     Indication: Arthropathy
     Route: 058
     Dates: start: 202408, end: 20250113
  3. CORTICOTROPIN [Suspect]
     Active Substance: CORTICOTROPIN
     Route: 058
     Dates: start: 20250320
  4. PREDNISONE [Suspect]
     Active Substance: PREDNISONE
     Indication: Ocular sarcoidosis
  5. ACTHAR [Suspect]
     Active Substance: CORTICOTROPIN
     Indication: Product used for unknown indication
     Dates: start: 20250123, end: 20250317
  6. ATORVASTATIN [Concomitant]
     Active Substance: ATORVASTATIN
  7. VITAMIN A [Concomitant]
     Active Substance: VITAMIN A
  8. DULOXETINE [Concomitant]
     Active Substance: DULOXETINE
  9. KLONOPIN [Concomitant]
     Active Substance: CLONAZEPAM
  10. FAMOTIDINE [Concomitant]
     Active Substance: FAMOTIDINE
  11. RETAINE [Concomitant]
     Active Substance: HYPROMELLOSE 2910 (4000 MPA.S)
  12. FOLIC ACID [Concomitant]
     Active Substance: FOLIC ACID
  13. MINERALS/VITAMINS [Concomitant]
  14. FISH OIL [Concomitant]
     Active Substance: FISH OIL
  15. METHOTREXATE [Concomitant]
     Active Substance: METHOTREXATE
  16. JUBLIA [Concomitant]
     Active Substance: EFINACONAZOLE
  17. SYNTHROID [Concomitant]
     Active Substance: LEVOTHYROXINE SODIUM
  18. LAMICTAL [Concomitant]
     Active Substance: LAMOTRIGINE
  19. RETAINE NACL [Concomitant]
     Active Substance: SODIUM CHLORIDE
  20. VITAMIN D3 K2 [Concomitant]
  21. Arthocin [Concomitant]
  22. VITAMINS [Concomitant]
     Active Substance: VITAMINS

REACTIONS (46)
  - Incorrect dose administered [Unknown]
  - Gastrooesophageal reflux disease [Unknown]
  - Memory impairment [Unknown]
  - Headache [Unknown]
  - Condition aggravated [Unknown]
  - Carpal tunnel syndrome [Unknown]
  - Vision blurred [Unknown]
  - Brain fog [Unknown]
  - Product dose omission issue [Unknown]
  - Fatigue [Unknown]
  - Inappropriate schedule of product administration [Unknown]
  - Injection site erythema [Unknown]
  - Injection site bruising [Unknown]
  - Injection site pruritus [Unknown]
  - Vocal cord disorder [Unknown]
  - Injection site scar [Unknown]
  - Respiratory disorder [Unknown]
  - Injection site reaction [Unknown]
  - Tremor [Unknown]
  - Thirst [Unknown]
  - Rash [Unknown]
  - Insomnia [Unknown]
  - Abdominal pain upper [Unknown]
  - Peripheral swelling [Unknown]
  - Arthralgia [Unknown]
  - Burning sensation [Unknown]
  - Sarcoidosis [Unknown]
  - Seizure [Unknown]
  - Lacrimation increased [Unknown]
  - Ocular hyperaemia [Unknown]
  - Eye swelling [Unknown]
  - Eye pain [Unknown]
  - Urinary incontinence [Unknown]
  - Hyperhidrosis [Unknown]
  - Muscular weakness [Unknown]
  - Chest discomfort [Unknown]
  - Off label use [Unknown]
  - Hypoaesthesia [Unknown]
  - Fall [Unknown]
  - Somnolence [Unknown]
  - Muscle atrophy [Unknown]
  - Diplopia [Unknown]
  - Nodule [Unknown]
  - Cyanosis [Unknown]
  - Presyncope [Unknown]
  - Skin hyperpigmentation [Unknown]
